FAERS Safety Report 6236507-4 (Version None)
Quarter: 2009Q2

REPORT INFORMATION
  Report Type: 
  Country: None (occurrence: None)
  Receive Date: 20090619
  Receipt Date: 20090608
  Transmission Date: 20091009
  Serious: Yes (Other)
  Sender: FDA-Public Use
  Company Number: A0771328A

PATIENT
  Age: 37 Year
  Sex: Female
  Weight: 83.6 kg

DRUGS (7)
  1. LOVAZA [Suspect]
     Dosage: 4G PER DAY
     Route: 048
     Dates: start: 20090417, end: 20090516
  2. NPH INSULIN [Concomitant]
     Dosage: 10UNIT TWICE PER DAY
  3. LOPID [Concomitant]
     Dosage: 600MG THREE TIMES PER DAY
  4. VITAMIN AND MINERAL PRENATAL SUPPLEMENT W/ FOLIC ACID CAP [Concomitant]
  5. FISH OIL [Concomitant]
  6. IRON [Concomitant]
  7. ANTIBIOTICS [Concomitant]
     Dates: end: 20090428

REACTIONS (4)
  - DRUG EXPOSURE DURING PREGNANCY [None]
  - LIVE BIRTH [None]
  - PREGNANCY INDUCED HYPERTENSION [None]
  - UMBILICAL CORD AROUND NECK [None]
